FAERS Safety Report 20773605 (Version 1)
Quarter: 2022Q2

REPORT INFORMATION
  Report Type: Spontaneous
  Country: US (occurrence: US)
  Receive Date: 20220502
  Receipt Date: 20220502
  Transmission Date: 20220720
  Serious: Yes (Death)
  Sender: FDA-Public Use
  Company Number: US-SHIRE-US201730883

PATIENT

DRUGS (2)
  1. IRINOTECAN [Suspect]
     Active Substance: IRINOTECAN
     Indication: Neoplasm malignant
     Dosage: 50 MG/M2, 1X/DAY:QD AND DOSE ESCALATION PROCEEDED IN INCREMENTS OF 10 MG/M2
     Route: 048
  2. CAPECITABINE [Suspect]
     Active Substance: CAPECITABINE
     Indication: Neoplasm malignant
     Dosage: 1600 MG/M2, 1X/DAY:QD AND AS DIVIDED  DOSE TWICE DAILY ON DAYS 6-14 OF EACH 21 DAY CYCLE
     Route: 048

REACTIONS (1)
  - Dehydration [Fatal]

NARRATIVE: CASE EVENT DATE: 20170101
